FAERS Safety Report 7050067-X (Version None)
Quarter: 2010Q4

REPORT INFORMATION
  Report Type: 
  Country: None (occurrence: None)
  Receive Date: 20101012
  Receipt Date: 20100927
  Transmission Date: 20110411
  Serious: Yes (Hospitalization, Other)
  Sender: FDA-Public Use
  Company Number: AUR-APL-2010-02402

PATIENT
  Age: 49 Year
  Sex: Female

DRUGS (5)
  1. TOPIRAMATE [Suspect]
     Indication: NEUROPATHY PERIPHERAL
     Dosage: 50-150MG-BID
  2. ASPIRIN [Concomitant]
  3. ATORVASTATIN [Concomitant]
  4. ESOMEPRAZOLE [Concomitant]
  5. OLANZAPINE [Concomitant]

REACTIONS (11)
  - ABDOMINAL TENDERNESS [None]
  - BLOOD POTASSIUM DECREASED [None]
  - BLOOD SODIUM DECREASED [None]
  - CALCULUS URETERIC [None]
  - CONFUSIONAL STATE [None]
  - HYDRONEPHROSIS [None]
  - LETHARGY [None]
  - METABOLIC ACIDOSIS [None]
  - MUCOUS MEMBRANE DISORDER [None]
  - RENAL FAILURE ACUTE [None]
  - URETERIC OBSTRUCTION [None]
